FAERS Safety Report 9100525 (Version 1)
Quarter: 2013Q1

REPORT INFORMATION
  Report Type: Spontaneous
  Country: US (occurrence: US)
  Receive Date: 20130215
  Receipt Date: 20130215
  Transmission Date: 20140127
  Serious: Yes (Other)
  Sender: FDA-Public Use
  Company Number: US-TEVA-386617USA

PATIENT
  Age: 81 Year
  Sex: Male

DRUGS (2)
  1. TREANDA [Suspect]
     Indication: CHRONIC LYMPHOCYTIC LEUKAEMIA
     Dosage: 2 DAYS EVERY MONTH
     Route: 042
     Dates: start: 20101117, end: 20110112
  2. RITUXIMAB [Suspect]
     Indication: CHRONIC LYMPHOCYTIC LEUKAEMIA
     Dosage: MONTHLY
     Route: 042
     Dates: start: 20101117, end: 20110111

REACTIONS (1)
  - Squamous cell carcinoma [Recovered/Resolved]
